FAERS Safety Report 14759683 (Version 2)
Quarter: 2020Q2

REPORT INFORMATION
  Report Type: Spontaneous
  Country: US (occurrence: US)
  Receive Date: 20180413
  Receipt Date: 20200520
  Transmission Date: 20200713
  Serious: Yes (Hospitalization, Other)
  Sender: FDA-Public Use
  Company Number: US-ASTRAZENECA-2018SE44384

PATIENT
  Age: 69 Year
  Sex: Male
  Weight: 93 kg

DRUGS (37)
  1. CLOTRIMAZOLE. [Concomitant]
     Active Substance: CLOTRIMAZOLE
     Indication: FUNGAL INFECTION
  2. CETIRIZINE [Concomitant]
     Active Substance: CETIRIZINE HYDROCHLORIDE
     Indication: PRURITUS
     Route: 048
     Dates: start: 20171005, end: 20181006
  3. ONDANSETRON [Concomitant]
     Active Substance: ONDANSETRON
     Route: 042
     Dates: start: 20180722
  4. TOBRAMYCIN. [Concomitant]
     Active Substance: TOBRAMYCIN
     Dosage: PRN
     Route: 042
     Dates: start: 20180723, end: 20180723
  5. ASPIRIN. [Concomitant]
     Active Substance: ASPIRIN
     Indication: THROMBOSIS
     Route: 048
     Dates: start: 20180219, end: 20190220
  6. CLOTRIMAZOLE. [Concomitant]
     Active Substance: CLOTRIMAZOLE
     Indication: PRURITUS
  7. CYCLOBENZAPRINE HCL [Concomitant]
     Active Substance: CYCLOBENZAPRINE HYDROCHLORIDE
     Indication: MUSCLE RELAXANT THERAPY
     Route: 048
     Dates: start: 20170119, end: 20180120
  8. ALBUTEROL. [Concomitant]
     Active Substance: ALBUTEROL
     Indication: DYSPNOEA
     Route: 048
     Dates: start: 20180205, end: 20190206
  9. LATANOPROST. [Concomitant]
     Active Substance: LATANOPROST
     Indication: GLAUCOMA
     Dosage: 1 DROP IN EACH EYE AT BEDTIME
     Route: 065
     Dates: start: 20180111, end: 20190112
  10. FLUTICASONE. [Concomitant]
     Active Substance: FLUTICASONE
  11. METOPROLOL SUCCINATE. [Concomitant]
     Active Substance: METOPROLOL SUCCINATE
     Route: 048
     Dates: start: 20180728
  12. HUMALOG [Concomitant]
     Active Substance: INSULIN LISPRO
     Route: 058
     Dates: start: 20180722
  13. ONGLYZA [Suspect]
     Active Substance: SAXAGLIPTIN HYDROCHLORIDE
     Indication: DIABETES MELLITUS
     Dosage: 5.0MG UNKNOWN
     Route: 048
     Dates: start: 20170610, end: 20181210
  14. ATORVASTATIN [Concomitant]
     Active Substance: ATORVASTATIN
     Indication: BLOOD CHOLESTEROL
     Dosage: 80 MG; TAKE ONE-HALF TABLET BY MOUTH EVERY EVENING
     Route: 048
     Dates: start: 20180219, end: 20190220
  15. GUAIFENESIN. [Concomitant]
     Active Substance: GUAIFENESIN
     Indication: CHEST DISCOMFORT
     Route: 048
     Dates: start: 20180205, end: 20190206
  16. METFORMIN [Concomitant]
     Active Substance: METFORMIN HYDROCHLORIDE
     Indication: DIABETES MELLITUS
  17. FLUTICASONE. [Concomitant]
     Active Substance: FLUTICASONE
  18. TYLENOL [Concomitant]
     Active Substance: ACETAMINOPHEN
     Dosage: 500.0MG UNKNOWN
     Route: 065
     Dates: start: 20180722
  19. ZOFRAN [Concomitant]
     Active Substance: ONDANSETRON HYDROCHLORIDE
     Dosage: 8.0MG UNKNOWN
     Route: 065
     Dates: start: 20180722
  20. PROMETHAZINE [Concomitant]
     Active Substance: PROMETHAZINE HYDROCHLORIDE
     Dosage: PRN
     Route: 065
     Dates: start: 20180722
  21. BUPROPION HCL [Concomitant]
     Active Substance: BUPROPION HYDROCHLORIDE
  22. ALBUTEROL. [Concomitant]
     Active Substance: ALBUTEROL
     Indication: WHEEZING
     Route: 048
     Dates: start: 20180205, end: 20190206
  23. CARBAMIDE PEROXIDE [Concomitant]
     Active Substance: CARBAMIDE PEROXIDE
  24. LEVOFLOXACIN. [Concomitant]
     Active Substance: LEVOFLOXACIN
     Indication: PAIN
     Route: 048
     Dates: start: 20180205, end: 20180307
  25. TRAZODONE [Concomitant]
     Active Substance: TRAZODONE HYDROCHLORIDE
     Indication: SLEEP DISORDER THERAPY
     Dosage: TAKE HALF TO ONE
     Route: 048
     Dates: start: 20170203, end: 20180204
  26. PANTOPRAZOLE [Concomitant]
     Active Substance: PANTOPRAZOLE
     Route: 042
     Dates: start: 20180728
  27. ACETAMINOPHEN. [Concomitant]
     Active Substance: ACETAMINOPHEN
     Dosage: PRN
     Route: 065
     Dates: start: 20180722
  28. METOPROLOL TARTRATE. [Concomitant]
     Active Substance: METOPROLOL TARTRATE
     Dosage: 5 MG; EVERY 5 MIN PRN
     Route: 042
     Dates: start: 20180724, end: 20180727
  29. MECLIZINE HCL [Concomitant]
     Active Substance: MECLIZINE HYDROCHLORIDE
     Indication: DIZZINESS
     Route: 048
     Dates: start: 20170119, end: 20180120
  30. HYDROCODONE/ACETAMINOPHEN [Concomitant]
     Active Substance: ACETAMINOPHEN\HYDROCODONE
     Indication: PAIN
     Dosage: 7.5/325 MG
     Route: 048
     Dates: start: 20180226, end: 20180328
  31. FLUCONAZOLE. [Concomitant]
     Active Substance: FLUCONAZOLE
     Route: 048
     Dates: start: 20180723, end: 20180725
  32. ONGLYZA [Suspect]
     Active Substance: SAXAGLIPTIN HYDROCHLORIDE
     Indication: DIABETES MELLITUS
     Dosage: 5.0MG UNKNOWN
     Route: 048
     Dates: start: 20150709
  33. LIDOCAINE. [Concomitant]
     Active Substance: LIDOCAINE
  34. AMOXICILLIN. [Concomitant]
     Active Substance: AMOXICILLIN
     Indication: INFECTION
     Route: 048
     Dates: start: 20180226, end: 20180328
  35. LOVENOX [Concomitant]
     Active Substance: ENOXAPARIN SODIUM
     Dosage: 100.0MG UNKNOWN
     Route: 065
     Dates: start: 20180722
  36. KOMBIGLYZE XR [Suspect]
     Active Substance: METFORMIN HYDROCHLORIDE\SAXAGLIPTIN HYDROCHLORIDE
     Indication: TYPE 2 DIABETES MELLITUS
     Route: 048
     Dates: start: 2017
  37. GLIPIZIDE. [Concomitant]
     Active Substance: GLIPIZIDE
     Indication: DIABETES MELLITUS
     Route: 048
     Dates: start: 20180131, end: 20190201

REACTIONS (4)
  - Cardiac failure congestive [Unknown]
  - Acute myocardial infarction [Unknown]
  - Cardiovascular disorder [Unknown]
  - Cardiac failure [Unknown]

NARRATIVE: CASE EVENT DATE: 2017
